FAERS Safety Report 9386038 (Version 1)
Quarter: 2013Q3

REPORT INFORMATION
  Report Type: Spontaneous
  Country: JP (occurrence: JP)
  Receive Date: 20130705
  Receipt Date: 20130705
  Transmission Date: 20140515
  Serious: Yes (Hospitalization)
  Sender: FDA-Public Use
  Company Number: JP-SANOFI-AVENTIS-2013SA066526

PATIENT
  Age: 84 Year
  Sex: Female
  Weight: 41 kg

DRUGS (3)
  1. PLAVIX [Suspect]
     Indication: CARDIAC DISORDER
     Dosage: IN THE MORNING
     Route: 048
  2. AMLODIPINE BESILATE/CANDESARTAN CILEXETIL [Concomitant]
     Dosage: 1 TABLET IN  MORNING
     Route: 048
  3. ONEALFA [Concomitant]
     Route: 048

REACTIONS (6)
  - Insulin autoimmune syndrome [Not Recovered/Not Resolved]
  - Loss of consciousness [Not Recovered/Not Resolved]
  - Insulin C-peptide increased [Not Recovered/Not Resolved]
  - Blood pressure increased [Not Recovered/Not Resolved]
  - Heart rate increased [Not Recovered/Not Resolved]
  - Blood glucose decreased [Not Recovered/Not Resolved]
